FAERS Safety Report 7784725-6 (Version None)
Quarter: 2011Q3

REPORT INFORMATION
  Report Type: 
  Country: None (occurrence: None)
  Receive Date: 20110928
  Receipt Date: 20110922
  Transmission Date: 20111222
  Serious: Yes (Other)
  Sender: FDA-Public Use
  Company Number: US-AMGEN-USASP2010004938

PATIENT
  Age: 53 Year
  Sex: Male

DRUGS (3)
  1. NPLATE [Suspect]
     Indication: IDIOPATHIC THROMBOCYTOPENIC PURPURA
     Dosage: 65 MUG, UNK
     Dates: start: 20100504, end: 20100914
  2. CORTICOSTEROIDS [Concomitant]
     Dosage: UNK
     Dates: start: 20100420
  3. IMMUNOGLOBULINS [Concomitant]

REACTIONS (5)
  - LEUKAEMOID REACTION [None]
  - HAEMATOLOGICAL MALIGNANCY [None]
  - BONE MARROW RETICULIN FIBROSIS [None]
  - LEUKOCYTOSIS [None]
  - THERAPEUTIC RESPONSE DECREASED [None]
